FAERS Safety Report 6933681-9 (Version None)
Quarter: 2010Q3

REPORT INFORMATION
  Report Type: 
  Country: None (occurrence: None)
  Receive Date: 20100820
  Receipt Date: 20100809
  Transmission Date: 20110219
  Serious: Yes (Hospitalization)
  Sender: FDA-Public Use
  Company Number: US-PFIZER INC-2009288685

PATIENT
  Sex: Male
  Weight: 79.7 kg

DRUGS (5)
  1. SUTENT [Suspect]
     Indication: ANAPLASTIC ASTROCYTOMA
     Dosage: 37.5 MG, 1X/DAY
     Route: 048
     Dates: start: 20090904, end: 20090930
  2. DEXAMETHASONE [Concomitant]
     Dosage: 4 MG, 2X/DAY
  3. KEPPRA [Concomitant]
     Dosage: 500 MG, 2X/DAY
  4. ACETAMINOPHEN AND HYDROCODONE BITARTRATE [Concomitant]
     Dosage: AS NEEDED
  5. KYTRIL [Concomitant]
     Dosage: AS NEEDED

REACTIONS (5)
  - BRAIN HERNIATION [None]
  - HAEMORRHAGE INTRACRANIAL [None]
  - NECROSIS [None]
  - PAIN [None]
  - VOMITING [None]
